FAERS Safety Report 4348766-3 (Version None)
Quarter: 2004Q1

REPORT INFORMATION
  Report Type: 
  Country: None (occurrence: None)
  Receive Date: 20040325
  Receipt Date: 20040226
  Transmission Date: 20041129
  Serious: No
  Sender: FDA-Public Use
  Company Number: USA040156514

PATIENT
  Age: 85 Year
  Sex: Female
  Weight: 69 kg

DRUGS (13)
  1. FORTEO [Suspect]
     Indication: OSTEOPOROSIS
     Dosage: 20 UG/1 DAY
     Dates: start: 20031218
  2. DARVOCET-N 100 [Concomitant]
  3. PROPOXYPHENE NAPSYLATE [Concomitant]
  4. FOSAMAX [Concomitant]
  5. CELEBREX [Concomitant]
  6. OSCAL (CALCIUM CARBONATE) [Concomitant]
  7. VITAMIN D [Concomitant]
  8. PRILOSEC [Concomitant]
  9. OXYCONTIN [Concomitant]
  10. FLEXEPRIL (CYCLOBENZAPRINE HYDROCHLORIDE) [Concomitant]
  11. ERGOCALCIFEROL [Concomitant]
  12. VICOPROFEN [Concomitant]
  13. CELEXA [Concomitant]

REACTIONS (8)
  - ASTHENIA [None]
  - DIZZINESS [None]
  - DRY MOUTH [None]
  - HYPOAESTHESIA ORAL [None]
  - OEDEMA PERIPHERAL [None]
  - PAIN [None]
  - TREMOR [None]
  - VISUAL DISTURBANCE [None]
